FAERS Safety Report 5387306-7 (Version None)
Quarter: 2007Q3

REPORT INFORMATION
  Report Type: 
  Country: None (occurrence: None)
  Receive Date: 20070716
  Receipt Date: 20070713
  Transmission Date: 20080115
  Serious: Yes (Death)
  Sender: FDA-Public Use
  Company Number: PHNU2007DE02221

PATIENT
  Age: 93 Year
  Sex: Male
  Weight: 74 kg

DRUGS (5)
  1. NIFEDIPINE [Concomitant]
     Dosage: 1-0-1 TABLETS/DAY
     Route: 048
  2. DIOVAN [Suspect]
     Indication: HYPERTENSION
     Dosage: 80MG, QD
     Route: 048
     Dates: start: 20041014, end: 20061113
  3. DIOVAN [Suspect]
     Dosage: 160MG, QD
     Dates: start: 20061113
  4. ENALAPRIL MALEATE [Concomitant]
     Indication: HYPERTENSION
     Dosage: 1 DF, BID
     Route: 048
  5. HYDROCHLOROTHIAZIDE [Concomitant]
     Dosage: 1 DF, QD
     Route: 048

REACTIONS (5)
  - BREATH SOUNDS ABNORMAL [None]
  - DYSPNOEA AT REST [None]
  - PNEUMONIA [None]
  - PYREXIA [None]
  - RESPIRATORY FAILURE [None]
